FAERS Safety Report 8041665-5 (Version None)
Quarter: 2012Q1

REPORT INFORMATION
  Report Type: 
  Country: None (occurrence: None)
  Receive Date: 20120112
  Receipt Date: 20120103
  Transmission Date: 20120608
  Serious: Yes (Other)
  Sender: FDA-Public Use
  Company Number: GB-ELI_LILLY_AND_COMPANY-GB201111007797

PATIENT
  Age: 12 Year
  Sex: Male
  Weight: 67.3 kg

DRUGS (4)
  1. SERTRALINE HYDROCHLORIDE [Concomitant]
     Dosage: UNK
  2. STRATTERA [Suspect]
     Indication: ATTENTION DEFICIT/HYPERACTIVITY DISORDER
     Dosage: 60 MG, UNKNOWN
  3. STRATTERA [Suspect]
     Dosage: 80 MG, QD
     Route: 048
     Dates: start: 20111001
  4. STRATTERA [Suspect]
     Dosage: 60 MG, QD
     Route: 048

REACTIONS (2)
  - ELECTROCARDIOGRAM QT PROLONGED [None]
  - PALPITATIONS [None]
